FAERS Safety Report 14240855 (Version 2)
Quarter: 2019Q3

REPORT INFORMATION
  Report Type: Spontaneous
  Country: US (occurrence: US)
  Receive Date: 20171130
  Receipt Date: 20190906
  Transmission Date: 20191004
  Serious: Yes (Death, Hospitalization, Other)
  Sender: FDA-Public Use
  Company Number: US-009507513-1711USA013884

PATIENT
  Sex: Female
  Weight: 74.38 kg

DRUGS (2)
  1. JANUMET [Suspect]
     Active Substance: METFORMIN HYDROCHLORIDE\SITAGLIPTIN PHOSPHATE
     Indication: PRODUCT USED FOR UNKNOWN INDICATION
     Dosage: 50/1000 MG, QD
     Route: 048
     Dates: start: 20120920, end: 20140828
  2. JANUVIA [Suspect]
     Active Substance: SITAGLIPTIN PHOSPHATE
     Indication: PRODUCT USED FOR UNKNOWN INDICATION
     Dosage: 50 MILLIGRAM (1/2 TABLET), QD
     Route: 048
     Dates: start: 20140718, end: 20151221

REACTIONS (17)
  - Pancreatitis [Recovered/Resolved]
  - Osteopenia [Unknown]
  - Adenocarcinoma pancreas [Fatal]
  - Hypertensive nephropathy [Recovered/Resolved]
  - Bile duct obstruction [Unknown]
  - Microalbuminuria [Recovered/Resolved]
  - Diverticulum [Unknown]
  - Anxiety [Unknown]
  - Iron deficiency anaemia [Not Recovered/Not Resolved]
  - Oesophageal stenosis [Unknown]
  - Blood cholesterol increased [Not Recovered/Not Resolved]
  - Hiatus hernia [Unknown]
  - Neuropathy peripheral [Recovered/Resolved]
  - Light chain disease [Unknown]
  - Chronic kidney disease [Recovered/Resolved]
  - Oesophageal dilatation [Unknown]
  - Anoxia [Recovered/Resolved]

NARRATIVE: CASE EVENT DATE: 2012
